FAERS Safety Report 11088473 (Version 13)
Quarter: 2021Q4

REPORT INFORMATION
  Report Type: Spontaneous
  Country: US (occurrence: US)
  Receive Date: 20150504
  Receipt Date: 20211217
  Transmission Date: 20220304
  Serious: Yes (Other)
  Sender: FDA-Public Use
  Company Number: US-PFIZER INC-2015143124

PATIENT
  Age: 63 Year
  Sex: Female
  Weight: 63 kg

DRUGS (51)
  1. LYRICA [Suspect]
     Active Substance: PREGABALIN
     Indication: Scoliosis
     Dosage: 150 MG, DAILY (DURING THE DAY)
     Dates: start: 2005
  2. LYRICA [Suspect]
     Active Substance: PREGABALIN
     Indication: Stenosis
     Dosage: 225 MG, DAILY (75 MG AT DAY AND 150 MG (2 OF 75 MG) BEFORE SHE WENT TO BED)
     Route: 048
  3. LYRICA [Suspect]
     Active Substance: PREGABALIN
     Indication: Spinal osteoarthritis
     Dosage: 75 MG, 1X/DAY
     Route: 048
  4. LYRICA [Suspect]
     Active Substance: PREGABALIN
     Indication: Intervertebral disc degeneration
     Dosage: 150 MG, 1X/DAY Q PM (1 8 AM)
     Route: 048
  5. LYRICA [Suspect]
     Active Substance: PREGABALIN
     Indication: Back disorder
     Dosage: 225 MG, DAILY (150MG; TIME: 1X/DAY-PM / 75 MG; TIME: 1X/DAY-AM)
  6. LYRICA [Suspect]
     Active Substance: PREGABALIN
     Indication: Nerve injury
     Dosage: 75 MG, 3X/DAY
     Route: 048
  7. LYRICA [Suspect]
     Active Substance: PREGABALIN
     Indication: Rotator cuff syndrome
     Dosage: 150 MG, 1X/DAY (AT BEDTIME)
     Route: 048
  8. LYRICA [Suspect]
     Active Substance: PREGABALIN
     Indication: Arthroscopic surgery
  9. LYRICA [Suspect]
     Active Substance: PREGABALIN
     Indication: Arthrodesis
  10. LYRICA [Suspect]
     Active Substance: PREGABALIN
     Indication: Spinal osteoarthritis
  11. LYRICA [Suspect]
     Active Substance: PREGABALIN
     Indication: Arthralgia
  12. LYRICA [Suspect]
     Active Substance: PREGABALIN
     Indication: Osteoarthritis
  13. LYRICA [Suspect]
     Active Substance: PREGABALIN
     Indication: Paraesthesia
  14. SINGULAIR [Concomitant]
     Active Substance: MONTELUKAST SODIUM
     Indication: Sinus pain
     Dosage: 10 MG, 1X/DAY
  15. IPRATROPIUM BROMIDE [Concomitant]
     Active Substance: IPRATROPIUM BROMIDE
     Dosage: UNK, AS NEEDED
     Route: 045
  16. CYMBALTA [Concomitant]
     Active Substance: DULOXETINE HYDROCHLORIDE
     Indication: Pain
     Dosage: 30 MG, 1X/DAY
  17. FLONASE [Concomitant]
     Active Substance: FLUTICASONE PROPIONATE
     Dosage: 1-2/DAY
     Route: 045
  18. ZOVIRAX [Concomitant]
     Active Substance: ACYCLOVIR
     Dosage: 400 MG, 2X/DAY (AM)
  19. MOBIC [Concomitant]
     Active Substance: MELOXICAM
     Indication: Osteoarthritis
     Dosage: 7.5 MG, 1X/DAY (AM)
  20. METOPROLOL SUCCINATE [Concomitant]
     Active Substance: METOPROLOL SUCCINATE
     Indication: Cardiac disorder
     Dosage: 25 MG, 1X/DAY (AM)
  21. NITROGLYCERIN [Concomitant]
     Active Substance: NITROGLYCERIN
     Indication: Cardiac disorder
     Dosage: UNK, AS NEEDED
  22. CRESTOR [Concomitant]
     Active Substance: ROSUVASTATIN CALCIUM
     Indication: Cardiac disorder
     Dosage: 5 MG, 1X/DAY (PM)
  23. PRILOSEC [Concomitant]
     Active Substance: OMEPRAZOLE MAGNESIUM
     Indication: Gastrooesophageal reflux disease
     Dosage: 40 MG, 2X/DAY
  24. VOLTARENE GEL [Concomitant]
     Indication: Bone pain
     Dosage: 2 G, 4X/DAY (AS NEEDED)
  25. PREMARIN [Concomitant]
     Active Substance: ESTROGENS, CONJUGATED
     Indication: Vulvovaginal dryness
     Dosage: 1-2 X/WEEK
  26. ASPIRIN [Concomitant]
     Active Substance: ASPIRIN
     Indication: Cardiac disorder
     Dosage: 81 MG, 1X/DAY (PM)
  27. TYLENOL XL [Concomitant]
     Indication: Osteoarthritis
     Dosage: 500 MG, AS NEEDED
  28. TRAMADOL [Concomitant]
     Active Substance: TRAMADOL
     Indication: Spinal pain
     Dosage: 50 MG, AS NEEDED
  29. AMBIEN [Concomitant]
     Active Substance: ZOLPIDEM TARTRATE
     Indication: Somnolence
     Dosage: 5 MG, AS NEEDED
  30. MINERALS\VITAMINS [Concomitant]
     Active Substance: MINERALS\VITAMINS
     Dosage: UNK, 1X/DAY (MULTIPLE) (PM)
  31. VITAMIN C [Concomitant]
     Active Substance: ASCORBIC ACID
     Dosage: 500 MG, 1X/DAY (AM)
  32. VITAMIN B12 [Concomitant]
     Active Substance: CYANOCOBALAMIN
     Dosage: 1000 ?G, 1X/DAY
  33. VITAMIN B12 [Concomitant]
     Active Substance: CYANOCOBALAMIN
     Dosage: 1000 UG, AS NEEDED
  34. BIOTIN [Concomitant]
     Active Substance: BIOTIN
     Dosage: 5000 ?G, 1X/DAY (AM)
  35. CALCIUM [Concomitant]
     Active Substance: CALCIUM
     Dosage: 600 MG, 1X/DAY (AM)
  36. VITAMIN D3 [Concomitant]
     Active Substance: CHOLECALCIFEROL
     Dosage: 1000 IU, 1X/DAY (AM)
  37. VITAMIN E [Concomitant]
     Active Substance: .ALPHA.-TOCOPHEROL
     Dosage: 400 IU, 1X/DAY
  38. FISH OIL [Concomitant]
     Active Substance: FISH OIL
     Dosage: 1000 MG, 1X/DAY
  39. FISH OIL [Concomitant]
     Active Substance: FISH OIL
     Dosage: 1000 MG, UNK (WHEN NOT HAVING FISH)
  40. MAGNESIUM [Concomitant]
     Active Substance: MAGNESIUM
     Dosage: 250 MG, 1X/DAY (PM)
  41. MELATONIN [Concomitant]
     Active Substance: MELATONIN
     Dosage: 5-6 MG (OCCASIONALLY)
  42. OMEPRAZOLE [Concomitant]
     Active Substance: OMEPRAZOLE
     Dosage: 40 MG, UNK
  43. ROSUVASTATIN [Concomitant]
     Active Substance: ROSUVASTATIN
     Dosage: 5 MG, UNK
  44. ACYCLOVIR [Concomitant]
     Active Substance: ACYCLOVIR
     Dosage: 1000 MG, UNK
  45. MONTELUKAST [Concomitant]
     Active Substance: MONTELUKAST SODIUM
     Dosage: 10 MG, UNK
  46. MELOXICAM [Concomitant]
     Active Substance: MELOXICAM
     Dosage: 7.5 MG, UNK
  47. METOPROLOL SUCCINATE [Concomitant]
     Active Substance: METOPROLOL SUCCINATE
     Dosage: 25 MG, UNK
  48. DULOXETINE [Concomitant]
     Active Substance: DULOXETINE
     Dosage: 60 MG, UNK
  49. FORTEO [Concomitant]
     Active Substance: TERIPARATIDE
     Indication: Osteoporosis
     Dosage: UNK, DAILY SHOT
  50. SALT [Concomitant]
     Active Substance: SODIUM CHLORIDE
     Dosage: UNK
  51. VOLTAREN [Concomitant]
     Active Substance: DICLOFENAC SODIUM
     Dosage: UNK

REACTIONS (10)
  - Myocardial infarction [Unknown]
  - Arterial occlusive disease [Unknown]
  - Sinusitis [Unknown]
  - Somnolence [Unknown]
  - Drug intolerance [Unknown]
  - Sinus congestion [Unknown]
  - Back pain [Unknown]
  - Pain [Unknown]
  - Peripheral venous disease [Unknown]
  - Asthenia [Unknown]

NARRATIVE: CASE EVENT DATE: 20130101
